FAERS Safety Report 8940485 (Version 2)
Quarter: 2013Q3

REPORT INFORMATION
  Report Type: Report from Study
  Country: US (occurrence: US)
  Receive Date: 20121203
  Receipt Date: 20130812
  Transmission Date: 20140515
  Serious: Yes (Death, Hospitalization, Other)
  Sender: FDA-Public Use
  Company Number: US-ROCHE-737821

PATIENT
  Sex: 0

DRUGS (1)
  1. RITUXIMAB [Suspect]
     Indication: ANTI-NEUTROPHIL CYTOPLASMIC ANTIBODY POSITIVE VASCULITIS
     Dosage: FORM: INFUSION
     Route: 042

REACTIONS (9)
  - Acute myeloid leukaemia [Fatal]
  - Pneumonia [Unknown]
  - Infusion related reaction [Unknown]
  - Upper respiratory tract infection [Unknown]
  - Skin infection [Unknown]
  - Bronchitis [Unknown]
  - Urinary tract infection [Unknown]
  - Herpes zoster [Unknown]
  - Cellulitis [Unknown]
